FAERS Safety Report 5495691-0 (Version None)
Quarter: 2007Q4

REPORT INFORMATION
  Report Type: 
  Country: None (occurrence: None)
  Receive Date: 20071018
  Receipt Date: 20070502
  Transmission Date: 20080405
  Serious: Yes (Hospitalization, Other)
  Sender: FDA-Public Use
  Company Number: 2007036645

PATIENT
  Age: 37 Year
  Sex: Male

DRUGS (7)
  1. NEURONTIN [Suspect]
     Indication: ANXIETY
  2. NEURONTIN [Suspect]
     Indication: BACK PAIN
  3. NEURONTIN [Suspect]
     Indication: BIPOLAR DISORDER
  4. NEURONTIN [Suspect]
     Indication: MIGRAINE
  5. NEURONTIN [Suspect]
     Indication: PAIN IN EXTREMITY
  6. DOXEPIN HCL [Concomitant]
  7. CELEXA [Concomitant]

REACTIONS (5)
  - AMNESIA [None]
  - DEPRESSION [None]
  - MICTURITION DISORDER [None]
  - SUICIDAL IDEATION [None]
  - WEIGHT INCREASED [None]
